FAERS Safety Report 10559555 (Version 2)
Quarter: 2014Q4

REPORT INFORMATION
  Report Type: Spontaneous
  Country: US (occurrence: US)
  Receive Date: 20141103
  Receipt Date: 20141204
  Transmission Date: 20150529
  Serious: No
  Sender: FDA-Public Use
  Company Number: US-PFIZER INC-2014298835

PATIENT
  Sex: Male

DRUGS (3)
  1. ELIQUIS [Suspect]
     Active Substance: APIXABAN
     Dosage: UNK
  2. FLUDROCORTISONE ACETATE. [Interacting]
     Active Substance: FLUDROCORTISONE ACETATE
     Dosage: 0.1 MG, UNK
     Dates: end: 20070822
  3. CELECOXIB. [Interacting]
     Active Substance: CELECOXIB
     Dosage: UNK

REACTIONS (2)
  - Arthritis [Unknown]
  - Drug interaction [Unknown]
